FAERS Safety Report 15004020 (Version 1)
Quarter: 2018Q2

REPORT INFORMATION
  Report Type: Report from Study
  Country: US (occurrence: US)
  Receive Date: 20180613
  Receipt Date: 20180613
  Transmission Date: 20180711
  Serious: No
  Sender: FDA-Public Use
  Company Number: PHEH2018US023241

PATIENT
  Sex: Female

DRUGS (1)
  1. COSENTYX [Suspect]
     Active Substance: SECUKINUMAB
     Indication: PSORIASIS
     Dosage: 300 MG, QMO
     Route: 058

REACTIONS (6)
  - Pain [Unknown]
  - Myalgia [Unknown]
  - Skin fissures [Unknown]
  - Skin exfoliation [Unknown]
  - Sciatica [Unknown]
  - Concomitant disease aggravated [Unknown]
